FAERS Safety Report 7894589-8 (Version None)
Quarter: 2011Q4

REPORT INFORMATION
  Report Type: 
  Country: None (occurrence: None)
  Receive Date: 20111102
  Receipt Date: 20111021
  Transmission Date: 20120403
  Serious: Yes (Hospitalization)
  Sender: FDA-Public Use
  Company Number: EU-2011-10172

PATIENT
  Age: 79 Year
  Sex: Male

DRUGS (13)
  1. ELECOR 25 MG COMPRIMIDOS RECUBIERTOS CON PELICULA, 30 COMPRIMIDOS (EPL [Concomitant]
  2. UNIKET RETARD 50 MG COMPRIMIDOS DE LIBERACION PROLONGADA, 30 COMPRIMID [Concomitant]
  3. MOLSIDAN 4 MG COMPRIMIDOS, 30 COMPRIMIDOS (MOLSIDOMINA) [Concomitant]
  4. SINTROM COMPRIMIDOS, 20 COMPRIMIDOS (ACENOCUMAROL) [Concomitant]
  5. DIGOXIN [Concomitant]
  6. RAMIPRIL [Concomitant]
  7. VERNES COMPRIMIDOS, 30 COMPRIMIDOS (NITROGLICERINA) [Concomitant]
  8. ATORVASTATINA (ATORVASTATIN CALCIUM) [Concomitant]
  9. PLETAL [Suspect]
     Indication: INTERMITTENT CLAUDICATION
     Dosage: 100 MG MILLIGRAM(S), BID, ORAL
     Route: 048
     Dates: start: 20110419, end: 20110519
  10. COROPRESS 25 MG COMPRIMIDOS, 28 COMPRIMIDOS (CARVEDILOL) [Concomitant]
  11. ARANESP 100MCG 1 PLUM PREC 0,5ML SOL INY (DARBEPOETIN ALFA) [Concomitant]
  12. ZYLORIC 300 MG COMPRIMIDOS, 30 COMPRIMIDOS (ALOPURINOL) [Concomitant]
  13. SEGURIL 40 MG COMPRIMIDOS, 30 COMPRIMIDOS (FUROSEMIDA) [Concomitant]

REACTIONS (6)
  - TROPONIN I INCREASED [None]
  - ATRIAL TACHYCARDIA [None]
  - CARDIO-RESPIRATORY ARREST [None]
  - CARDIAC FAILURE [None]
  - CARDIAC ARREST [None]
  - CARDIAC FLUTTER [None]
